FAERS Safety Report 5233900-3 (Version None)
Quarter: 2007Q1

REPORT INFORMATION
  Report Type: 
  Country: None (occurrence: None)
  Receive Date: 20070208
  Receipt Date: 20070130
  Transmission Date: 20070707
  Serious: Yes (Hospitalization)
  Sender: FDA-Public Use
  Company Number: 2007AP00798

PATIENT
  Age: 68 Year
  Sex: Female

DRUGS (2)
  1. SEROQUEL [Suspect]
     Indication: SCHIZOPHRENIA
     Dosage: DOSE HAD BEEN GRADUALLY INCREASED TO 300 MG DAILY
     Route: 048
  2. EMILACE [Suspect]
     Route: 048

REACTIONS (2)
  - FALL [None]
  - FRACTURE [None]
